FAERS Safety Report 15357304 (Version 2)
Quarter: 2018Q3

REPORT INFORMATION
  Report Type: Spontaneous
  Country: US (occurrence: US)
  Receive Date: 20180906
  Receipt Date: 20180927
  Transmission Date: 20181010
  Serious: No
  Sender: FDA-Public Use
  Company Number: PHEH2018US036605

PATIENT
  Age: 75 Year
  Sex: Female

DRUGS (2)
  1. BRIMONIDINE [Suspect]
     Active Substance: BRIMONIDINE TARTRATE
     Indication: GLAUCOMA
     Dosage: UNK UNK, BID
     Route: 047
  2. TIMOLOL. [Suspect]
     Active Substance: TIMOLOL
     Indication: GLAUCOMA
     Dosage: UNK UNK, QD
     Route: 047

REACTIONS (5)
  - Eyelid oedema [Unknown]
  - Ocular hyperaemia [Unknown]
  - Insomnia [Unknown]
  - Eye pain [Unknown]
  - Eye irritation [Unknown]
